FAERS Safety Report 6806803-8 (Version None)
Quarter: 2010Q2

REPORT INFORMATION
  Report Type: 
  Country: None (occurrence: None)
  Receive Date: 20100629
  Receipt Date: 20080430
  Transmission Date: 20101027
  Serious: No
  Sender: FDA-Public Use
  Company Number: US-PFIZER INC-2008029227

PATIENT
  Sex: Male

DRUGS (5)
  1. VIAGRA [Interacting]
     Indication: ERECTILE DYSFUNCTION
  2. ATENOLOL [Interacting]
  3. ATENOLOL [Interacting]
  4. AMIODARONE [Suspect]
  5. DIGOXIN [Suspect]

REACTIONS (4)
  - ANORGASMIA [None]
  - DRUG INEFFECTIVE [None]
  - DRUG INTERACTION [None]
  - THERAPEUTIC RESPONSE DELAYED [None]
